FAERS Safety Report 4517696-6 (Version None)
Quarter: 2004Q4

REPORT INFORMATION
  Report Type: 
  Country: None (occurrence: None)
  Receive Date: 20041130
  Receipt Date: 20041119
  Transmission Date: 20050328
  Serious: Yes (Death)
  Sender: FDA-Public Use
  Company Number: F01200403709

PATIENT
  Age: 62 Year
  Sex: Male
  Weight: 83.9 kg

DRUGS (2)
  1. OXALIPLATIN - SOLUTION - 130 MG/M2 [Suspect]
     Indication: NON-SMALL CELL LUNG CANCER
     Dosage: 130 MG/M2 Q3W - INTRAVENOUS NOS
     Route: 042
     Dates: start: 20041110, end: 20041110
  2. GEMCITABINE SOLUTION 1000 MG/M2 [Suspect]
     Dosage: 1000 MG/M2 Q3W INTRAVENOUS  NOS
     Route: 042
     Dates: start: 20041117, end: 20041117

REACTIONS (2)
  - HAEMATEMESIS [None]
  - HAEMOPTYSIS [None]
